FAERS Safety Report 23525916 (Version 1)
Quarter: 2024Q1

REPORT INFORMATION
  Report Type: Spontaneous
  Country: SO (occurrence: SO)
  Receive Date: 20240215
  Receipt Date: 20240215
  Transmission Date: 20240410
  Serious: Yes (Life-Threatening, Hospitalization, Other)
  Sender: FDA-Public Use
  Company Number: SO-MACLEODS PHARMACEUTICALS US LTD-MAC2024045423

PATIENT

DRUGS (2)
  1. SILDENAFIL [Suspect]
     Active Substance: SILDENAFIL
     Indication: Product used for unknown indication
     Dosage: 1 DOSAGE FORM, PRN
     Route: 048
  2. SILDENAFIL [Suspect]
     Active Substance: SILDENAFIL
     Dosage: 2 DOSAGE FORM, SINGLE, (TWO SILDENAFIL 50 MG TABLET ONCE 2 HOURS PRIOR TO ADMISSION)
     Route: 048

REACTIONS (5)
  - Haemorrhagic stroke [Recovering/Resolving]
  - Cerebral haemorrhage [Recovering/Resolving]
  - Overdose [Unknown]
  - Prescription drug used without a prescription [Unknown]
  - Incorrect product administration duration [Unknown]
